FAERS Safety Report 8129517-3 (Version None)
Quarter: 2012Q1

REPORT INFORMATION
  Report Type: 
  Country: None (occurrence: None)
  Receive Date: 20120210
  Receipt Date: 20120210
  Transmission Date: 20120608
  Serious: Yes (Death, Hospitalization)
  Sender: FDA-Public Use
  Company Number: JP-B.I. PHARMACEUTICALS,INC./RIDGEFIELD-2012-BP-00513NB

PATIENT
  Sex: Female
  Weight: 46.2 kg

DRUGS (14)
  1. SPIRIVA [Suspect]
     Indication: EMPHYSEMA
     Dosage: 5 MCG
     Route: 055
     Dates: start: 20101213, end: 20110715
  2. CRESTOR [Concomitant]
     Dosage: 2.5 MG
     Route: 048
  3. SIGMART [Concomitant]
     Dosage: 10 MG
     Route: 048
  4. ADALAT CC [Concomitant]
     Dosage: 20 MG
     Route: 048
  5. CALBLOCK [Concomitant]
     Dosage: 16 MG
     Route: 048
  6. BASEN [Concomitant]
     Dosage: 0.6 MG
     Route: 048
  7. OLMESARTAN MEDOXOMIL [Concomitant]
     Dosage: 20 MG
     Route: 048
  8. MAGMITT [Concomitant]
     Dosage: 500 MG
     Route: 048
  9. AMARYL [Concomitant]
     Dosage: 0.5 MG
     Route: 048
  10. SPIRIVA [Suspect]
     Dosage: 18 MCG
     Route: 055
     Dates: start: 20110716
  11. METHYCOBAL [Concomitant]
     Dosage: 1000 MCG
     Route: 048
  12. PLAVIX [Concomitant]
     Dosage: 50 MG
     Route: 048
  13. TENORMIN [Concomitant]
     Dosage: 12.5 MG
     Route: 048
  14. NITOROL R [Concomitant]
     Dosage: 40 MG
     Route: 048

REACTIONS (4)
  - ELECTROLYTE IMBALANCE [None]
  - UPPER RESPIRATORY TRACT INFLAMMATION [None]
  - SMALL CELL LUNG CANCER STAGE UNSPECIFIED [None]
  - METASTASES TO CHEST WALL [None]
